FAERS Safety Report 5543822-6 (Version None)
Quarter: 2007Q4

REPORT INFORMATION
  Report Type: 
  Country: None (occurrence: None)
  Receive Date: 20071210
  Receipt Date: 20071113
  Transmission Date: 20080405
  Serious: No
  Sender: FDA-Public Use
  Company Number: US-BOEHRINGER INGELHEIM PHARMACEUTICALS, INC.-2007-BP-24520BP

PATIENT
  Sex: Female

DRUGS (6)
  1. MIRAPEX [Suspect]
     Indication: RESTLESS LEGS SYNDROME
     Route: 048
     Dates: start: 20070901
  2. PAXIL [Concomitant]
     Indication: DEPRESSION
  3. NABUMITONE [Concomitant]
     Indication: ARTHRITIS
  4. PEPCID [Concomitant]
  5. CLONAZEPAM [Concomitant]
     Indication: PANIC DISORDER
  6. BENAZEPRIL HYDROCHLORIDE [Concomitant]
     Indication: HYPERTENSION

REACTIONS (1)
  - GAMBLING [None]
